FAERS Safety Report 7998070-7 (Version None)
Quarter: 2011Q4

REPORT INFORMATION
  Report Type: 
  Country: None (occurrence: None)
  Receive Date: 20111221
  Receipt Date: 20110104
  Transmission Date: 20120403
  Serious: No
  Sender: FDA-Public Use
  Company Number: US-GLAXOSMITHKLINE-A0902832A

PATIENT
  Sex: Male

DRUGS (5)
  1. ST JOHNS WORT [Concomitant]
  2. VITAMIN B-12 [Concomitant]
  3. LOVAZA [Suspect]
     Indication: LOW DENSITY LIPOPROTEIN INCREASED
     Dosage: 1CAP TWICE PER DAY
     Route: 048
     Dates: start: 20101223
  4. ASPIRIN [Concomitant]
  5. OSTEO BI-FLEX [Concomitant]

REACTIONS (4)
  - MUSCULOSKELETAL DISCOMFORT [None]
  - FLATULENCE [None]
  - WEIGHT INCREASED [None]
  - MUSCULOSKELETAL PAIN [None]
